FAERS Safety Report 7746275-2 (Version None)
Quarter: 2011Q3

REPORT INFORMATION
  Report Type: 
  Country: None (occurrence: None)
  Receive Date: 20110913
  Receipt Date: 20110906
  Transmission Date: 20111222
  Serious: Yes (Hospitalization)
  Sender: FDA-Public Use
  Company Number: FR-BRISTOL-MYERS SQUIBB COMPANY-16050965

PATIENT
  Age: 59 Year
  Sex: Female

DRUGS (2)
  1. TEMSIROLIMUS [Suspect]
     Indication: NEOPLASM MALIGNANT
     Dosage: NO OF INFUSION-1.LAST DOSE ON 23AUG11:5DAYS.
     Route: 042
     Dates: start: 20110818
  2. CETUXIMAB [Suspect]
     Indication: NEOPLASM MALIGNANT
     Dosage: NO OF INFUSION-1.LAST DOSE ON 23AUG11:5DAYS.
     Route: 042
     Dates: start: 20110818

REACTIONS (1)
  - VENA CAVA THROMBOSIS [None]
